FAERS Safety Report 13253282 (Version 1)
Quarter: 2017Q1

REPORT INFORMATION
  Report Type: Spontaneous
  Country: US (occurrence: US)
  Receive Date: 20170220
  Receipt Date: 20170220
  Transmission Date: 20170428
  Serious: Yes (Hospitalization)
  Sender: FDA-Public Use
  Company Number: US-PFIZER INC-2016578435

PATIENT
  Sex: Female

DRUGS (1)
  1. CHAPSTICK CLASSIC ORIGINAL [Suspect]
     Active Substance: PETROLATUM
     Indication: CHAPPED LIPS
     Dosage: UNK
     Dates: start: 1960

REACTIONS (7)
  - Application site scab [Recovered/Resolved]
  - Cheilitis [Recovered/Resolved]
  - Skin exfoliation [Recovered/Resolved]
  - Oral discomfort [Recovered/Resolved]
  - Chapped lips [Recovered/Resolved]
  - Hypersensitivity [Unknown]
  - Lip pain [Recovered/Resolved]
